FAERS Safety Report 9695790 (Version 1)
Quarter: 2013Q4

REPORT INFORMATION
  Report Type: Spontaneous
  Country: US (occurrence: None)
  Receive Date: 20131118
  Receipt Date: 20131118
  Transmission Date: 20140711
  Serious: No
  Sender: FDA-Public Use
  Company Number: None

PATIENT
  Age: 64 Year
  Sex: Female
  Weight: 2.27 kg

DRUGS (1)
  1. CIPRO [Suspect]
     Indication: DRUG THERAPY
     Dates: start: 20131101

REACTIONS (3)
  - Chest pain [None]
  - Muscle spasms [None]
  - Muscle spasms [None]
